FAERS Safety Report 6998308-9 (Version None)
Quarter: 2010Q3

REPORT INFORMATION
  Report Type: 
  Country: None (occurrence: None)
  Receive Date: 20100920
  Receipt Date: 20100427
  Transmission Date: 20110219
  Serious: No
  Sender: FDA-Public Use
  Company Number: US-ASTRAZENECA-2010SE18988

PATIENT
  Age: 63 Year
  Sex: Female

DRUGS (3)
  1. SEROQUEL XR [Suspect]
     Route: 048
  2. SEROQUEL XR [Suspect]
     Route: 048
  3. FENTANYL-75 [Suspect]
     Indication: PAIN IN EXTREMITY
     Route: 062
     Dates: start: 20090401

REACTIONS (7)
  - DRUG INEFFECTIVE [None]
  - HYPERHIDROSIS [None]
  - INSOMNIA [None]
  - MIDDLE INSOMNIA [None]
  - NERVOUSNESS [None]
  - PAIN [None]
  - SOMNOLENCE [None]
